FAERS Safety Report 23526142 (Version 1)
Quarter: 2024Q1

REPORT INFORMATION
  Report Type: Other
  Country: DE (occurrence: DE)
  Receive Date: 20240215
  Receipt Date: 20240215
  Transmission Date: 20240409
  Serious: Yes (Hospitalization, Other)
  Sender: FDA-Public Use
  Company Number: DE-ROCHE-2129449

PATIENT
  Age: 32 Year
  Sex: Female

DRUGS (12)
  1. OCREVUS [Suspect]
     Active Substance: OCRELIZUMAB
     Indication: Secondary progressive multiple sclerosis
     Dosage: SECOND INFUSION ON 22/MAY/2018
     Route: 042
     Dates: start: 20180508
  2. OCREVUS [Suspect]
     Active Substance: OCRELIZUMAB
     Dosage: SUBSEQUENT DOSES ON: 09/MAY/2019
     Route: 042
     Dates: start: 20181108
  3. OCREVUS [Suspect]
     Active Substance: OCRELIZUMAB
     Route: 042
     Dates: start: 20190509
  4. OCREVUS [Suspect]
     Active Substance: OCRELIZUMAB
     Route: 042
     Dates: start: 20180522
  5. OCREVUS [Suspect]
     Active Substance: OCRELIZUMAB
     Dosage: ON 11/MAR/2021, 6TH MAINTENANCE DOSE WAS GIVEN
     Route: 042
     Dates: start: 2020
  6. OCREVUS [Suspect]
     Active Substance: OCRELIZUMAB
     Dosage: 6TH MAINTENANCE DOSE
     Route: 042
     Dates: start: 20210311
  7. OCREVUS [Suspect]
     Active Substance: OCRELIZUMAB
     Route: 042
     Dates: start: 20180508
  8. COMIRNATY (TOZINAMERAN) [Suspect]
     Active Substance: TOZINAMERAN
     Indication: COVID-19 prophylaxis
     Dosage: ON 21/JUL/2021, SHE RECEIVED 2ND VACCINE
     Route: 065
  9. COMIRNATY (TOZINAMERAN) [Suspect]
     Active Substance: TOZINAMERAN
     Dosage: 2ND VACCINE
     Route: 065
     Dates: start: 20210721
  10. COMIRNATY (TOZINAMERAN) [Suspect]
     Active Substance: TOZINAMERAN
     Dosage: THIRD VACCINE
     Route: 065
     Dates: start: 20211215
  11. DESOGESTREL [Concomitant]
     Active Substance: DESOGESTREL
  12. NABIXIMOLS [Concomitant]
     Active Substance: NABIXIMOLS

REACTIONS (17)
  - Intermenstrual bleeding [Recovered/Resolved]
  - Diplegia [Recovered/Resolved]
  - Gait disturbance [Not Recovered/Not Resolved]
  - Constipation [Unknown]
  - Urinary retention [Unknown]
  - Vaccination failure [Unknown]
  - Lactose intolerance [Unknown]
  - Cystitis [Recovered/Resolved]
  - Asthenia [Recovered/Resolved]
  - Cystitis noninfective [Recovered/Resolved]
  - Off label use [Unknown]
  - Diarrhoea [Recovered/Resolved]
  - Apathy [Recovered/Resolved]
  - Fatigue [Recovered/Resolved]
  - Cystitis noninfective [Recovered/Resolved]
  - Alopecia [Unknown]
  - COVID-19 [Recovered/Resolved]

NARRATIVE: CASE EVENT DATE: 20180508
